FAERS Safety Report 20573118 (Version 1)
Quarter: 2022Q1

REPORT INFORMATION
  Report Type: Spontaneous
  Country: US (occurrence: None)
  Receive Date: 20220309
  Receipt Date: 20220309
  Transmission Date: 20220424
  Serious: No
  Sender: FDA-Public Use
  Company Number: None

PATIENT
  Age: 44 Year
  Sex: Female

DRUGS (1)
  1. COPAXONE [Suspect]
     Active Substance: GLATIRAMER ACETATE
     Indication: Product used for unknown indication
     Dosage: FREQUENCY : 3 TIMES A WEEK;?OTHER ROUTE : UNDER THE SKIN;?
     Route: 050

REACTIONS (4)
  - Respiratory arrest [None]
  - Lip swelling [None]
  - Pharyngeal swelling [None]
  - Eye swelling [None]

NARRATIVE: CASE EVENT DATE: 20220304
